FAERS Safety Report 4496247-9 (Version None)
Quarter: 2004Q4

REPORT INFORMATION
  Report Type: 
  Country: None (occurrence: None)
  Receive Date: 20041109
  Receipt Date: 20041028
  Transmission Date: 20050328
  Serious: Yes (Death, Hospitalization)
  Sender: FDA-Public Use
  Company Number: NSADSS2002011303

PATIENT
  Sex: Female
  Weight: 228.16 kg

DRUGS (11)
  1. BLINDED; INFLIXIMAB, RECOMBINANT [Suspect]
  2. BLINDED; INFLIXIMAB, RECOMBINANT [Suspect]
  3. BLINDED; INFLIXIMAB, RECOMBINANT [Suspect]
     Indication: PULMONARY SARCOIDOSIS
  4. PLACEBO [Suspect]
     Route: 041
     Dates: start: 20020213
  5. PLACEBO [Suspect]
     Route: 041
     Dates: start: 20020213
  6. PLACEBO [Suspect]
     Indication: SARCOIDOSIS
     Route: 041
     Dates: start: 20020213
  7. ZAROXOLYN [Concomitant]
     Indication: DRUG USE FOR UNKNOWN INDICATION
     Dates: start: 20011213
  8. KLOR-CON [Concomitant]
     Indication: DRUG USE FOR UNKNOWN INDICATION
     Route: 049
  9. DEMADEX [Concomitant]
     Indication: DRUG USE FOR UNKNOWN INDICATION
     Route: 049
     Dates: start: 20011213
  10. LASIX [Concomitant]
     Indication: DRUG USE FOR UNKNOWN INDICATION
     Route: 049
     Dates: start: 20020318
  11. PREDNISONE [Concomitant]
     Route: 049
     Dates: start: 20010809

REACTIONS (10)
  - BLOOD CREATINE PHOSPHOKINASE INCREASED [None]
  - CARDIAC ARREST [None]
  - CARDIO-RESPIRATORY ARREST [None]
  - CELLULITIS [None]
  - CONDITION AGGRAVATED [None]
  - PULMONARY EMBOLISM [None]
  - PULMONARY HYPERTENSION [None]
  - RENAL FAILURE ACUTE [None]
  - RHABDOMYOLYSIS [None]
  - SEPSIS [None]
